FAERS Safety Report 5025765-X (Version None)
Quarter: 2006Q2

REPORT INFORMATION
  Report Type: 
  Country: None (occurrence: None)
  Receive Date: 20060607
  Receipt Date: 20060524
  Transmission Date: 20061013
  Serious: Yes (Death)
  Sender: FDA-Public Use
  Company Number: 2006BH009837

PATIENT
  Sex: 0

DRUGS (2)
  1. FLUOROURACIL [Suspect]
     Indication: SQUAMOUS CELL CARCINOMA
     Dosage: 1000 MG/M**2; 2 CYCLE
  2. MITOMYCIN [Suspect]
     Indication: SQUAMOUS CELL CARCINOMA
     Dosage: 10 MG/M**2

REACTIONS (3)
  - BONE MARROW FAILURE [None]
  - GASTROINTESTINAL TOXICITY [None]
  - NEUTROPENIC SEPSIS [None]
